FAERS Safety Report 18236767 (Version 4)
Quarter: 2020Q4

REPORT INFORMATION
  Report Type: Spontaneous
  Country: US (occurrence: US)
  Receive Date: 20200907
  Receipt Date: 20201103
  Transmission Date: 20210113
  Serious: Yes (Hospitalization)
  Sender: FDA-Public Use
  Company Number: US-SA-2020SA219555

PATIENT

DRUGS (1)
  1. CABLIVI [Suspect]
     Active Substance: CAPLACIZUMAB-YHDP
     Indication: THROMBOTIC MICROANGIOPATHY
     Dosage: 11 MG, QD
     Route: 058
     Dates: start: 20200823

REACTIONS (9)
  - Hospitalisation [Unknown]
  - White blood cell count decreased [Unknown]
  - Anaemia [Unknown]
  - Contusion [Unknown]
  - Haematocrit decreased [Unknown]
  - Epistaxis [Recovered/Resolved]
  - Haemoglobin decreased [Not Recovered/Not Resolved]
  - Fatigue [Unknown]
  - Injection site pain [Unknown]

NARRATIVE: CASE EVENT DATE: 202008
